FAERS Safety Report 9328743 (Version 4)
Quarter: 2015Q1

REPORT INFORMATION
  Report Type: Spontaneous
  Country: US (occurrence: US)
  Receive Date: 20130604
  Receipt Date: 20150224
  Transmission Date: 20150721
  Serious: Yes (Other)
  Sender: FDA-Public Use
  Company Number: US-SANOFI-AVENTIS-2013SA012215

PATIENT
  Age: 68 Year
  Sex: Female

DRUGS (4)
  1. SOLOSTAR [Concomitant]
     Active Substance: DEVICE
     Indication: TYPE 2 DIABETES MELLITUS
     Dates: start: 2013
  2. LANTUS SOLOSTAR [Suspect]
     Active Substance: INSULIN GLARGINE
     Indication: TYPE 2 DIABETES MELLITUS
     Dosage: DOSE:68 UNIT(S)
     Route: 065
     Dates: start: 2013
  3. SOLOSTAR [Concomitant]
     Active Substance: DEVICE
     Indication: TYPE 2 DIABETES MELLITUS
     Dates: start: 201210
  4. LANTUS SOLOSTAR [Suspect]
     Active Substance: INSULIN GLARGINE
     Indication: TYPE 2 DIABETES MELLITUS
     Dosage: DOSE:40 UNIT(S)
     Route: 051
     Dates: start: 201210

REACTIONS (11)
  - Pain in extremity [Not Recovered/Not Resolved]
  - Neuropathy peripheral [Unknown]
  - Blood glucose increased [Unknown]
  - Product odour abnormal [Unknown]
  - Nail operation [Unknown]
  - Hypersensitivity [Unknown]
  - Erythema [Unknown]
  - Diabetic ulcer [Not Recovered/Not Resolved]
  - Condition aggravated [Unknown]
  - Urine odour abnormal [Unknown]
  - Skin swelling [Unknown]

NARRATIVE: CASE EVENT DATE: 201302
